FAERS Safety Report 9306994 (Version 1)
Quarter: 2013Q2

REPORT INFORMATION
  Report Type: Spontaneous
  Country: US (occurrence: US)
  Receive Date: 20130523
  Receipt Date: 20130523
  Transmission Date: 20140414
  Serious: No
  Sender: FDA-Public Use
  Company Number: US-009507513-1305USA008499

PATIENT
  Age: 28 Year
  Sex: Female
  Weight: 61.22 kg

DRUGS (1)
  1. IMPLANON [Suspect]
     Indication: CONTRACEPTION
     Dosage: EVERY 3 YEARS 1 ROD
     Route: 059
     Dates: start: 20121213

REACTIONS (2)
  - Amenorrhoea [Unknown]
  - Menorrhagia [Unknown]
